FAERS Safety Report 10187068 (Version 2)
Quarter: 2014Q2

REPORT INFORMATION
  Report Type: Report from Study
  Country: CA (occurrence: CA)
  Receive Date: 20140522
  Receipt Date: 20140604
  Transmission Date: 20141212
  Serious: Yes (Other)
  Sender: FDA-Public Use
  Company Number: CA-BRISTOL-MYERS SQUIBB COMPANY-20781209

PATIENT
  Age: 48 Year
  Sex: Female

DRUGS (16)
  1. ORENCIA [Suspect]
     Indication: SYSTEMIC LUPUS ERYTHEMATOSUS
     Route: 042
     Dates: start: 20140121, end: 20140326
  2. NAPROXEN [Concomitant]
  3. IRON [Concomitant]
  4. SULFATRIM D/S [Concomitant]
  5. COLCHICINE [Concomitant]
  6. FOLIC ACID [Concomitant]
  7. XARELTO [Concomitant]
  8. ELAVIL [Concomitant]
  9. PREDNISONE [Concomitant]
  10. LEUCOVORIN [Concomitant]
  11. ZOPICLONE [Concomitant]
  12. SULFASALAZINE [Concomitant]
  13. PAROXETINE [Concomitant]
  14. METHOTREXATE [Concomitant]
  15. RISPERIDONE [Concomitant]
  16. ALDARA [Concomitant]

REACTIONS (2)
  - Renal failure [Unknown]
  - Off label use [Unknown]
